FAERS Safety Report 4634827-8 (Version None)
Quarter: 2005Q2

REPORT INFORMATION
  Report Type: 
  Country: None (occurrence: None)
  Receive Date: 20050412
  Receipt Date: 20050405
  Transmission Date: 20051028
  Serious: Yes (Hospitalization)
  Sender: FDA-Public Use
  Company Number: 200510607GDS

PATIENT
  Age: 86 Year
  Sex: Female
  Weight: 60 kg

DRUGS (4)
  1. AVALOX        (MOXIFLOXACIN HYDROCHLORIDE) [Suspect]
     Indication: IMPLANT SITE INFECTION
     Dosage: 400 MG, QD; ORAL
     Route: 048
     Dates: start: 20050124, end: 20050216
  2. RIFAMPICIN [Suspect]
     Indication: IMPLANT SITE INFECTION
     Dosage: 450 MG, BID; ORAL
     Route: 048
     Dates: start: 20050124, end: 20050216
  3. VALSARTAN/HCTZ [Concomitant]
  4. ASPIRIN [Concomitant]

REACTIONS (2)
  - AGRANULOCYTOSIS [None]
  - LEUKOPENIA [None]
